FAERS Safety Report 5955234-1 (Version None)
Quarter: 2008Q4

REPORT INFORMATION
  Report Type: 
  Country: None (occurrence: None)
  Receive Date: 20081117
  Receipt Date: 20081107
  Transmission Date: 20090506
  Serious: No
  Sender: FDA-Public Use
  Company Number: US-B.I. PHARMACEUTICALS,INC./RIDGEFIELD-2008-BP-15295BP

PATIENT
  Age: 68 Year
  Sex: Female

DRUGS (13)
  1. COMBIVENT [Suspect]
     Indication: CHRONIC OBSTRUCTIVE PULMONARY DISEASE
     Route: 055
     Dates: start: 20020101
  2. COMBIVENT [Suspect]
     Indication: BRONCHITIS
  3. COMBIVENT [Suspect]
     Indication: ASTHMA
  4. TOPROL-XL [Concomitant]
     Indication: BLOOD PRESSURE INCREASED
     Route: 048
  5. TOPROL-XL [Concomitant]
     Indication: CARDIAC FAILURE CONGESTIVE
  6. ALTACE [Concomitant]
     Indication: BLOOD PRESSURE INCREASED
     Route: 048
  7. ALTACE [Concomitant]
     Indication: CARDIAC FAILURE CONGESTIVE
  8. ISOSORBIDE MONONITRATE [Concomitant]
  9. LIPITOR [Concomitant]
  10. RAMIPRIL [Concomitant]
  11. ACIPHEX [Concomitant]
  12. IPRICAL [Concomitant]
  13. ASPIRIN [Concomitant]
     Dosage: 325MG

REACTIONS (1)
  - DYSGEUSIA [None]
